FAERS Safety Report 5795267-1 (Version None)
Quarter: 2008Q2

REPORT INFORMATION
  Report Type: 
  Country: None (occurrence: None)
  Receive Date: 20080626
  Receipt Date: 20080620
  Transmission Date: 20081010
  Serious: Yes (Other)
  Sender: FDA-Public Use
  Company Number: 2008016420

PATIENT
  Sex: Female

DRUGS (1)
  1. ZYRTEC [Suspect]
     Dosage: 3 PILLS AT ONE TIME (10 MG), ORAL
     Route: 048

REACTIONS (2)
  - FEELING ABNORMAL [None]
  - INCORRECT DOSE ADMINISTERED [None]
